FAERS Safety Report 4444849-8 (Version None)
Quarter: 2004Q3

REPORT INFORMATION
  Report Type: 
  Country: None (occurrence: None)
  Receive Date: 20040907
  Receipt Date: 20040907
  Transmission Date: 20050211
  Serious: Yes (Other)
  Sender: FDA-Public Use
  Company Number: None

PATIENT
  Age: 21 Year
  Sex: Male
  Weight: 186.4284 kg

DRUGS (2)
  1. VANCOMYCIN [Suspect]
     Indication: CELLULITIS
     Dosage: 1.75 GM  IV Q12
     Route: 042
     Dates: start: 20040827
  2. VANCOMYCIN [Suspect]
     Indication: CELLULITIS
     Dosage: 1.75 GM  IV Q12
     Route: 042
     Dates: start: 20040904

REACTIONS (1)
  - RASH GENERALISED [None]
